FAERS Safety Report 7483747-2 (Version None)
Quarter: 2011Q2

REPORT INFORMATION
  Report Type: 
  Country: None (occurrence: None)
  Receive Date: 20110517
  Receipt Date: 20110503
  Transmission Date: 20111010
  Serious: Yes (Hospitalization)
  Sender: FDA-Public Use
  Company Number: US-ELI_LILLY_AND_COMPANY-US201105001405

PATIENT
  Sex: Female

DRUGS (5)
  1. EVISTA [Suspect]
     Indication: OSTEOPOROSIS
     Dosage: 60 MG, QD
     Route: 065
     Dates: start: 20010101
  2. FISH OIL [Concomitant]
     Dosage: UNK, UNKNOWN
     Route: 065
  3. CALCIUM +VIT D [Concomitant]
     Dosage: UNK, UNKNOWN
  4. MAGNESIUM [Concomitant]
     Dosage: UNK, UNKNOWN
  5. CENTRUM [Concomitant]
     Dosage: UNK, UNKNOWN

REACTIONS (2)
  - BLADDER NECK SUSPENSION [None]
  - BLOOD OESTROGEN DECREASED [None]
